FAERS Safety Report 4768154-5 (Version None)
Quarter: 2005Q3

REPORT INFORMATION
  Report Type: 
  Country: None (occurrence: None)
  Receive Date: 20050912
  Receipt Date: 20050912
  Transmission Date: 20060218
  Serious: Yes (Hospitalization)
  Sender: FDA-Public Use
  Company Number: None

PATIENT
  Age: 58 Year
  Sex: Male
  Weight: 64 kg

DRUGS (3)
  1. AMPHOTERICIN B [Suspect]
     Indication: PNEUMONIA FUNGAL
     Dosage: 300 MG IV
     Route: 042
     Dates: start: 20050729
  2. AMPHOTERICIN B [Suspect]
     Indication: PNEUMONIA FUNGAL
     Dosage: 300 MG IV
     Route: 042
     Dates: start: 20050731
  3. AMPHOTERICIN B [Suspect]
     Indication: PNEUMONIA FUNGAL
     Dosage: 300 MG IV
     Route: 042
     Dates: start: 20050801

REACTIONS (1)
  - BLOOD CREATININE INCREASED [None]
